FAERS Safety Report 22245862 (Version 1)
Quarter: 2023Q2

REPORT INFORMATION
  Report Type: Report from Study
  Country: CO (occurrence: CO)
  Receive Date: 20230424
  Receipt Date: 20230424
  Transmission Date: 20230722
  Serious: Yes (Other)
  Sender: FDA-Public Use
  Company Number: CO-002147023-NVSC2020CO203470

PATIENT
  Age: 43 Year
  Sex: Female
  Weight: 56 kg

DRUGS (2)
  1. GILENYA [Suspect]
     Active Substance: FINGOLIMOD HYDROCHLORIDE
     Indication: Multiple sclerosis
     Dosage: 0.5 MG, TIW
     Route: 048
     Dates: start: 20190920
  2. GILENYA [Suspect]
     Active Substance: FINGOLIMOD HYDROCHLORIDE
     Dosage: 0.5 MG, QD
     Route: 048
     Dates: end: 20230304

REACTIONS (5)
  - Leukopenia [Not Recovered/Not Resolved]
  - Lymphopenia [Recovered/Resolved]
  - Skin lesion [Recovered/Resolved]
  - Prescribed underdose [Unknown]
  - Inappropriate schedule of product administration [Unknown]

NARRATIVE: CASE EVENT DATE: 20200501
